FAERS Safety Report 8233874-7 (Version None)
Quarter: 2012Q1

REPORT INFORMATION
  Report Type: 
  Country: None (occurrence: None)
  Receive Date: 20120321
  Receipt Date: 20120309
  Transmission Date: 20120608
  Serious: Yes (Other)
  Sender: FDA-Public Use
  Company Number: 2012AP000685

PATIENT
  Age: 25 Year
  Sex: Male

DRUGS (3)
  1. HYPERICUM (HYPERICUM) [Suspect]
     Indication: ANXIETY
     Dosage: 900 MG; QD
  2. SERTRALINE HYDROCHLORIDE [Suspect]
     Indication: PRODUCT USED FOR UNKNOWN INDICATION
  3. ESCITALOPRAM [Suspect]
     Indication: ANXIETY
     Dosage: 10 MG;QD

REACTIONS (15)
  - AGGRESSION [None]
  - PARANOIA [None]
  - SEROTONIN SYNDROME [None]
  - DRUG INTERACTION [None]
  - PHYSICAL ASSAULT [None]
  - AGITATION [None]
  - MANIA [None]
  - SUICIDE ATTEMPT [None]
  - IMPULSIVE BEHAVIOUR [None]
  - FEELING OF DESPAIR [None]
  - AKATHISIA [None]
  - PERSONALITY CHANGE [None]
  - IMPRISONMENT [None]
  - EJACULATION FAILURE [None]
  - DEPRESSION [None]
